FAERS Safety Report 25223232 (Version 1)
Quarter: 2025Q2

REPORT INFORMATION
  Report Type: Spontaneous
  Country: US (occurrence: US)
  Receive Date: 20250422
  Receipt Date: 20250422
  Transmission Date: 20250717
  Serious: No
  Sender: DR REDDYS
  Company Number: US-DRL-USA-USA/2025/03/004852

PATIENT
  Age: 59 Year
  Sex: Female

DRUGS (10)
  1. ATORVASTATIN [Suspect]
     Active Substance: ATORVASTATIN
     Indication: Dyslipidaemia
  2. ATORVASTATIN [Suspect]
     Active Substance: ATORVASTATIN
     Indication: Cardiovascular event prophylaxis
  3. ATORVASTATIN [Suspect]
     Active Substance: ATORVASTATIN
  4. CRIZOTINIB [Suspect]
     Active Substance: CRIZOTINIB
     Indication: Non-small cell lung cancer stage IV
  5. LORLATINIB [Concomitant]
     Active Substance: LORLATINIB
     Indication: Non-small cell lung cancer stage IV
     Dosage: AFTER 26?DAYS (CURRENT PRESENTATION)
  6. LORLATINIB [Concomitant]
     Active Substance: LORLATINIB
  7. EZETIMIBE [Concomitant]
     Active Substance: EZETIMIBE
     Indication: Non-small cell lung cancer stage IV
  8. CARBOPLATIN [Concomitant]
     Active Substance: CARBOPLATIN
     Indication: Non-small cell lung cancer stage IV
  9. TAXOL [Concomitant]
     Active Substance: PACLITAXEL
     Indication: Non-small cell lung cancer stage IV
  10. ENTRECTINIB [Concomitant]
     Active Substance: ENTRECTINIB
     Indication: Non-small cell lung cancer stage IV

REACTIONS (2)
  - Drug interaction [Unknown]
  - Drug ineffective [Unknown]
